FAERS Safety Report 9154237 (Version 2)
Quarter: 2013Q1

REPORT INFORMATION
  Report Type: Spontaneous
  Country: TW (occurrence: TW)
  Receive Date: 20130311
  Receipt Date: 20130313
  Transmission Date: 20140127
  Serious: Yes (Other)
  Sender: FDA-Public Use
  Company Number: TW-PFIZER INC-2013076770

PATIENT
  Age: 55 Year
  Sex: Female

DRUGS (4)
  1. CAMPTO [Suspect]
  2. FLUOROURACIL [Concomitant]
  3. LEUCOVORIN [Concomitant]
  4. AVASTIN [Concomitant]

REACTIONS (2)
  - Aspartate aminotransferase increased [Unknown]
  - Alanine aminotransferase increased [Unknown]
